FAERS Safety Report 25012533 (Version 4)
Quarter: 2025Q4

REPORT INFORMATION
  Report Type: Report from Study
  Country: EU (occurrence: EU)
  Receive Date: 20250226
  Receipt Date: 20251020
  Transmission Date: 20260117
  Serious: Yes (Hospitalization, Other)
  Sender: ABBVIE
  Company Number: EU-ABBVIE-6146657

PATIENT
  Age: 82 Year
  Sex: Female

DRUGS (9)
  1. CARBIDOPA [Suspect]
     Active Substance: CARBIDOPA
     Indication: Parkinson^s disease
     Dosage: MD 4.2 ML; CRT 1.2 ML/H; ED 1.0 ML AN
     Route: 050
     Dates: start: 20170710
  2. CARBIDOPA [Suspect]
     Active Substance: CARBIDOPA
     Dosage: MD: 3.5 ML; CRD: 1.2 ML/H; ED: 1.0 ML.
     Route: 050
  3. BENSERAZIDE HYDROCHLORIDE\LEVODOPA [Concomitant]
     Active Substance: BENSERAZIDE HYDROCHLORIDE\LEVODOPA
     Indication: Product used for unknown indication
  4. RIVASTIGMINE [Concomitant]
     Active Substance: RIVASTIGMINE
     Indication: Product used for unknown indication
  5. BENSERAZIDE HYDROCHLORIDE\LEVODOPA [Concomitant]
     Active Substance: BENSERAZIDE HYDROCHLORIDE\LEVODOPA
     Indication: Product used for unknown indication
  6. VITAMIN C [Concomitant]
     Active Substance: ASCORBIC ACID
     Indication: Product used for unknown indication
  7. Quetiapine puren [Concomitant]
     Indication: Product used for unknown indication
  8. METAMIZOLE [Concomitant]
     Active Substance: METAMIZOLE
     Indication: Product used for unknown indication
  9. Gelencium [Concomitant]
     Indication: Product used for unknown indication

REACTIONS (13)
  - Medical device site joint inflammation [Not Recovered/Not Resolved]
  - Ureterolithiasis [Recovering/Resolving]
  - Bile duct stone [Recovering/Resolving]
  - Stoma site inflammation [Not Recovered/Not Resolved]
  - Nephrolithiasis [Recovered/Resolved]
  - Stoma site erythema [Not Recovered/Not Resolved]
  - Stoma site discharge [Not Recovered/Not Resolved]
  - Stoma site hypergranulation [Not Recovered/Not Resolved]
  - Device dislocation [Unknown]
  - Nervous system disorder [Not Recovered/Not Resolved]
  - Musculoskeletal stiffness [Not Recovered/Not Resolved]
  - Hyperkinesia [Not Recovered/Not Resolved]
  - Knee arthroplasty [Unknown]

NARRATIVE: CASE EVENT DATE: 20250101
